FAERS Safety Report 6070146-3 (Version None)
Quarter: 2009Q1

REPORT INFORMATION
  Report Type: 
  Country: None (occurrence: None)
  Receive Date: 20090209
  Receipt Date: 20090129
  Transmission Date: 20090719
  Serious: No
  Sender: FDA-Public Use
  Company Number: US-EISAI MEDIAL RESEARCH-M7002-00623-CLI-US

PATIENT
  Sex: Female
  Weight: 55 kg

DRUGS (11)
  1. ONTAK [Suspect]
     Indication: PERIPHERAL T-CELL LYMPHOMA UNSPECIFIED
     Route: 041
     Dates: end: 20071219
  2. CYCLOPHOSPHAMIDE [Concomitant]
     Indication: PERIPHERAL T-CELL LYMPHOMA UNSPECIFIED
     Route: 042
     Dates: end: 20071220
  3. DOXORUBICIN HCL [Concomitant]
     Indication: PERIPHERAL T-CELL LYMPHOMA UNSPECIFIED
     Route: 042
     Dates: end: 20071220
  4. VINCRISTINE [Concomitant]
     Indication: PERIPHERAL T-CELL LYMPHOMA UNSPECIFIED
     Route: 042
  5. PREDNISONE [Concomitant]
     Indication: SKIN LESION
     Route: 048
     Dates: end: 20071224
  6. AZATHIOPRINE [Concomitant]
     Route: 048
     Dates: start: 20070501
  7. SYNTHROID [Concomitant]
     Indication: HYPOTHYROIDISM
     Route: 048
  8. SYNTHROID [Concomitant]
     Route: 048
  9. ALLOPURINOL [Concomitant]
     Indication: PROPHYLAXIS
     Route: 048
  10. ACYCLOVIR [Concomitant]
     Route: 048
  11. NEULASTA [Concomitant]
     Route: 058
     Dates: start: 20070831

REACTIONS (1)
  - FEBRILE NEUTROPENIA [None]
